FAERS Safety Report 20437466 (Version 2)
Quarter: 2022Q1

REPORT INFORMATION
  Report Type: Spontaneous
  Country: CN (occurrence: CN)
  Receive Date: 20220207
  Receipt Date: 20220210
  Transmission Date: 20220423
  Serious: Yes (Hospitalization, Other)
  Sender: FDA-Public Use
  Company Number: CN-MLMSERVICE-20220119-3325871-1

PATIENT
  Age: 55 Year
  Sex: Female

DRUGS (11)
  1. EPIRUBICIN HYDROCHLORIDE [Suspect]
     Active Substance: EPIRUBICIN HYDROCHLORIDE
     Indication: HER2 positive breast cancer
     Dosage: 130 MG, CYCLIC, FOR FOUR CYCLES
  2. PACLITAXEL [Suspect]
     Active Substance: PACLITAXEL
     Indication: HER2 positive breast cancer
     Dosage: UNK, 4 CYCLIC
  3. CYCLOPHOSPHAMIDE [Suspect]
     Active Substance: CYCLOPHOSPHAMIDE
     Indication: HER2 positive breast cancer
     Dosage: 900 MG, CYCLIC, FOR FOUR CYCLES
  4. TRASTUZUMAB [Suspect]
     Active Substance: TRASTUZUMAB
     Indication: HER2 positive breast cancer
     Dosage: 360 MG, CYCLIC, FOUR-CYCLE WITH PACLITAXEL
  5. TRASTUZUMAB [Suspect]
     Active Substance: TRASTUZUMAB
     Dosage: 360 MG, CYCLIC, FOUR CYCLES WITH ONLY TRASTUZUMAB
  6. SPIRONOLACTONE [Concomitant]
     Active Substance: SPIRONOLACTONE
     Indication: Cardiovascular event prophylaxis
     Dosage: 20 MG, 1X/DAY
  7. SPIRONOLACTONE [Concomitant]
     Active Substance: SPIRONOLACTONE
     Dosage: 40 MG, 2X/DAY
  8. METOPROLOL [Concomitant]
     Active Substance: METOPROLOL
     Indication: Cardiovascular event prophylaxis
     Dosage: 25 MG, 2X/DAY
  9. METOPROLOL [Concomitant]
     Active Substance: METOPROLOL
     Dosage: 50 MG, 2X/DAY
  10. PERINDOPRIL [Concomitant]
     Active Substance: PERINDOPRIL
     Indication: Cardiovascular event prophylaxis
     Dosage: 2 MG, 1X/DAY
  11. PERINDOPRIL [Concomitant]
     Active Substance: PERINDOPRIL
     Dosage: 8 MG, 1X/DAY

REACTIONS (2)
  - Cardiac failure chronic [Recovered/Resolved]
  - Cardiac dysfunction [Recovered/Resolved]
